FAERS Safety Report 4318218-5 (Version None)
Quarter: 2004Q1

REPORT INFORMATION
  Report Type: 
  Country: None (occurrence: None)
  Receive Date: 20040315
  Receipt Date: 20040304
  Transmission Date: 20041129
  Serious: Yes (Other)
  Sender: FDA-Public Use
  Company Number: GBWYE626508MAR04

PATIENT
  Age: 37 Year
  Sex: Female

DRUGS (5)
  1. MICROVAL (LEVONORGESTREL, TABLET) [Suspect]
     Dosage: TAKEN REGULARLY FOR SEVEN YEARS
     Route: 048
  2. ZYBAN [Suspect]
     Indication: SMOKING CESSATION THERAPY
     Dosage: 150 MG
     Route: 048
     Dates: start: 20040112
  3. SERTRALINE (SERTRALINE) [Concomitant]
  4. KAPAKE (CODEINE PHOSPHATE/PARACETAMOL) [Concomitant]
  5. IBUPROFEN [Concomitant]

REACTIONS (4)
  - COMPLICATIONS OF MATERNAL EXPOSURE TO THERAPEUTIC DRUGS [None]
  - DRUG INEFFECTIVE [None]
  - DRUG INTERACTION [None]
  - UNINTENDED PREGNANCY [None]
